FAERS Safety Report 23491834 (Version 1)
Quarter: 2024Q1

REPORT INFORMATION
  Report Type: Spontaneous
  Country: US (occurrence: US)
  Receive Date: 20240207
  Receipt Date: 20240207
  Transmission Date: 20240409
  Serious: Yes (Other)
  Sender: FDA-Public Use
  Company Number: US-STRIDES ARCOLAB LIMITED-2023SP018324

PATIENT
  Age: 44 Year
  Sex: Female

DRUGS (6)
  1. DOXYCYCLINE [Suspect]
     Active Substance: DOXYCYCLINE
     Indication: Type IV hypersensitivity reaction
     Dosage: UNKNOWN
     Route: 065
  2. METHOTREXATE [Suspect]
     Active Substance: METHOTREXATE
     Indication: Type IV hypersensitivity reaction
     Dosage: UNK
     Route: 065
  3. TACROLIMUS [Suspect]
     Active Substance: TACROLIMUS
     Indication: Type IV hypersensitivity reaction
     Dosage: UNK
     Route: 061
  4. FLUOROURACIL [Concomitant]
     Active Substance: FLUOROURACIL
     Indication: Type IV hypersensitivity reaction
     Dosage: UNK
     Route: 065
  5. KENALOG [Concomitant]
     Active Substance: TRIAMCINOLONE ACETONIDE
     Indication: Type IV hypersensitivity reaction
     Dosage: UNK
     Route: 026
  6. PREDNISONE [Concomitant]
     Active Substance: PREDNISONE
     Indication: Type IV hypersensitivity reaction
     Dosage: UNK
     Route: 065

REACTIONS (2)
  - Treatment failure [Unknown]
  - Off label use [Unknown]
